FAERS Safety Report 20579585 (Version 1)
Quarter: 2022Q1

REPORT INFORMATION
  Report Type: Spontaneous
  Country: AU (occurrence: AU)
  Receive Date: 20220310
  Receipt Date: 20220310
  Transmission Date: 20220423
  Serious: Yes (Hospitalization, Other)
  Sender: FDA-Public Use
  Company Number: AU-JNJFOC-20220308095

PATIENT
  Age: 46 Year
  Sex: Female

DRUGS (1)
  1. FENTANYL [Suspect]
     Active Substance: FENTANYL
     Indication: Back pain
     Route: 062

REACTIONS (10)
  - Dysstasia [Recovering/Resolving]
  - Gait disturbance [Recovering/Resolving]
  - Loss of personal independence in daily activities [Recovering/Resolving]
  - Back pain [Recovering/Resolving]
  - Constipation [Unknown]
  - Drug tolerance increased [Recovering/Resolving]
  - Drug withdrawal syndrome [Recovering/Resolving]
  - Somnolence [Unknown]
  - Toxicity to various agents [Recovering/Resolving]
  - Treatment failure [Recovering/Resolving]
